FAERS Safety Report 16799212 (Version 3)
Quarter: 2021Q1

REPORT INFORMATION
  Report Type: Spontaneous
  Country: US (occurrence: US)
  Receive Date: 20190912
  Receipt Date: 20210330
  Transmission Date: 20210419
  Serious: No
  Sender: FDA-Public Use
  Company Number: US-PFIZER INC-2019393770

PATIENT
  Age: 71 Year
  Sex: Female
  Weight: 54.42 kg

DRUGS (9)
  1. CEFACLOR. [Suspect]
     Active Substance: CEFACLOR
     Dosage: UNK
  2. CECLOR [Suspect]
     Active Substance: CEFACLOR
     Dosage: UNK
  3. KEFLEX [Suspect]
     Active Substance: CEPHALEXIN
     Dosage: UNK
  4. PIROXICAM. [Suspect]
     Active Substance: PIROXICAM
     Dosage: UNK
  5. ANSAID [Suspect]
     Active Substance: FLURBIPROFEN
     Dosage: UNK
  6. KETOPROFEN. [Suspect]
     Active Substance: KETOPROFEN
     Dosage: UNK
  7. LAMISIL [Suspect]
     Active Substance: TERBINAFINE HYDROCHLORIDE
     Dosage: UNK
  8. SULINDAC. [Suspect]
     Active Substance: SULINDAC
     Dosage: UNK
  9. FELDENE [Suspect]
     Active Substance: PIROXICAM
     Dosage: UNK

REACTIONS (1)
  - Pruritus allergic [Unknown]

NARRATIVE: CASE EVENT DATE: 20200903
